FAERS Safety Report 7672326 (Version 3)
Quarter: 2013Q4

REPORT INFORMATION
  Report Type: Spontaneous
  Country: US (occurrence: US)
  Receive Date: 20101117
  Receipt Date: 20131226
  Transmission Date: 20140711
  Serious: Yes (Other)
  Sender: FDA-Public Use
  Company Number: US-BAYER-201040951NA

PATIENT
  Age: 23 Year
  Sex: Female
  Weight: 61 kg

DRUGS (9)
  1. YAZ [Suspect]
     Indication: ORAL CONTRACEPTION
     Route: 048
     Dates: start: 200908, end: 20091115
  2. YASMIN [Suspect]
     Indication: ORAL CONTRACEPTION
     Route: 048
     Dates: start: 200801, end: 20080715
  3. OCELLA [Suspect]
     Indication: ORAL CONTRACEPTION
     Dosage: UNK
     Route: 048
     Dates: start: 200807, end: 20080915
  4. HYDROMET SYRUP [Concomitant]
  5. PREDNISONE [Concomitant]
     Dosage: 10 MG, TID
  6. LODRANE 24 [Concomitant]
  7. CIPROFLOXACIN [Concomitant]
  8. PRENATAL [Concomitant]
  9. PREVACID [Concomitant]
     Indication: ABDOMINAL PAIN UPPER

REACTIONS (4)
  - Pancreatitis [Unknown]
  - Cholecystitis chronic [None]
  - Gallbladder disorder [Unknown]
  - Pain [Unknown]
